FAERS Safety Report 7522083 (Version 2)
Quarter: 2014Q2

REPORT INFORMATION
  Report Type: Other
  Country: JP (occurrence: JP)
  Receive Date: 20100803
  Receipt Date: 20140407
  Transmission Date: 20141212
  Serious: Yes (Other)
  Sender: FDA-Public Use
  Company Number: JP-SHIRE-SPV1-2010-00132

PATIENT
  Age: 9 Year
  Sex: Male
  Weight: 28 kg

DRUGS (7)
  1. ELAPRASE [Suspect]
     Indication: MUCOPOLYSACCHARIDOSIS II
     Dosage: 13.5 MG, UNKNOWN
     Route: 041
     Dates: start: 20081126, end: 20091224
  2. ELAPRASE [Suspect]
     Dosage: UNK, UNKNOWN (DOSE RESOTRED AT SMALL UNKNOWN MG, THEN INCREASED)
     Route: 041
  3. LORATADINE [Concomitant]
     Indication: PREMEDICATION
     Dosage: 10 MG, 1X/DAY:QD
     Dates: start: 20090827, end: 20091224
  4. HYDROXYZINE PAMOATE [Concomitant]
     Indication: PREMEDICATION
     Dosage: 25 MG, ONE DOSE
     Dates: start: 20091210, end: 20091210
  5. METHYLPREDNISOLONE SODIUM SUCCINATE [Concomitant]
     Indication: PREMEDICATION
     Dosage: 30 MG, ONE DOSE
     Route: 065
     Dates: start: 20091210, end: 20091210
  6. METHYLPREDNISOLONE SODIUM SUCCINATE [Concomitant]
     Dosage: 20 MG, ONE DOSE
     Dates: start: 20091217, end: 20091217
  7. METHYLPREDNISOLONE SODIUM SUCCINATE [Concomitant]
     Dosage: 30 MG, UNK
     Route: 065
     Dates: start: 20091224, end: 20091224

REACTIONS (4)
  - Respiratory disorder [Unknown]
  - Eyelid oedema [Recovered/Resolved]
  - Urticaria [Unknown]
  - Infusion related reaction [Unknown]
